FAERS Safety Report 13355860 (Version 2)
Quarter: 2017Q2

REPORT INFORMATION
  Report Type: Spontaneous
  Country: CA (occurrence: CA)
  Receive Date: 20170321
  Receipt Date: 20170510
  Transmission Date: 20170830
  Serious: Yes (Life-Threatening, Hospitalization)
  Sender: FDA-Public Use
  Company Number: CA-SA-2017SA043225

PATIENT
  Age: 60 Year
  Sex: Female

DRUGS (15)
  1. ACTEMRA [Suspect]
     Active Substance: TOCILIZUMAB
     Indication: RHEUMATOID ARTHRITIS
     Route: 065
  2. ALPHAGAN P [Suspect]
     Active Substance: BRIMONIDINE TARTRATE
     Dosage: FORM LIQUID OPHTHALMIC
     Route: 065
  3. CODEINE [Suspect]
     Active Substance: CODEINE
     Route: 065
  4. DEXTROMETHORPHAN HYDROBROMIDE AND GUAIFENESIN [Suspect]
     Active Substance: DEXTROMETHORPHAN HYDROBROMIDE\GUAIFENESIN
     Route: 065
  5. RITUXAN [Suspect]
     Active Substance: RITUXIMAB
     Indication: RHEUMATOID ARTHRITIS
     Dosage: SOLUTION INTRAVENOUS
     Route: 065
     Dates: start: 20150928
  6. XALATAN [Suspect]
     Active Substance: LATANOPROST
     Dosage: SOLUTION OPHTHALMIC
     Route: 065
  7. CYCLOBENZAPRINE HYDROCHLORIDE. [Suspect]
     Active Substance: CYCLOBENZAPRINE HYDROCHLORIDE
     Route: 065
  8. MORPHINE [Concomitant]
     Active Substance: MORPHINE
     Route: 065
  9. XELJANZ [Concomitant]
     Active Substance: TOFACITINIB CITRATE
     Route: 065
  10. DESOXIMETASONE. [Suspect]
     Active Substance: DESOXIMETASONE
     Route: 048
  11. METHOTREXATE SODIUM. [Suspect]
     Active Substance: METHOTREXATE SODIUM
     Indication: RHEUMATOID ARTHRITIS
     Route: 065
  12. TORADOL [Suspect]
     Active Substance: KETOROLAC TROMETHAMINE
     Route: 065
  13. CELEBREX [Suspect]
     Active Substance: CELECOXIB
     Route: 065
  14. ARAVA [Suspect]
     Active Substance: LEFLUNOMIDE
     Indication: RHEUMATOID ARTHRITIS
     Route: 065
  15. SALAZOPYRIN [Suspect]
     Active Substance: SULFASALAZINE
     Indication: RHEUMATOID ARTHRITIS
     Route: 065

REACTIONS (10)
  - Abdominal pain [Not Recovered/Not Resolved]
  - Anaemia [Not Recovered/Not Resolved]
  - Erythema [Not Recovered/Not Resolved]
  - Drug ineffective [Unknown]
  - Meniscus injury [Not Recovered/Not Resolved]
  - Drug intolerance [Unknown]
  - Drug hypersensitivity [Not Recovered/Not Resolved]
  - Condition aggravated [Not Recovered/Not Resolved]
  - Coma [Unknown]
  - Hypothyroidism [Not Recovered/Not Resolved]
